FAERS Safety Report 18565704 (Version 1)
Quarter: 2020Q4

REPORT INFORMATION
  Report Type: Spontaneous
  Country: JP (occurrence: JP)
  Receive Date: 20201201
  Receipt Date: 20201201
  Transmission Date: 20210114
  Serious: Yes (Other)
  Sender: FDA-Public Use
  Company Number: JP-BAYER-2020-257253

PATIENT

DRUGS (2)
  1. NEXAVAR [Suspect]
     Active Substance: SORAFENIB
     Indication: DRUG THERAPY
     Dosage: 400MG PER DAILY
     Dates: start: 202002, end: 202003
  2. NEXAVAR [Suspect]
     Active Substance: SORAFENIB
     Indication: DRUG THERAPY
     Dosage: 800MG PER DAILY
     Dates: start: 202001, end: 202001

REACTIONS (2)
  - Hepatic failure [None]
  - Platelet count decreased [None]

NARRATIVE: CASE EVENT DATE: 2020
